FAERS Safety Report 20469811 (Version 1)
Quarter: 2022Q1

REPORT INFORMATION
  Report Type: Report from Study
  Country: US (occurrence: US)
  Receive Date: 20220214
  Receipt Date: 20220214
  Transmission Date: 20220424
  Serious: No
  Sender: FDA-Public Use
  Company Number: US-PHARMACOVIGILANCE-US-KAD-22-00027

PATIENT
  Sex: Female

DRUGS (11)
  1. REZUROCK [Suspect]
     Active Substance: BELUMOSUDIL
     Indication: Product used for unknown indication
     Dosage: 200 MILLIGRAM, QD
     Dates: start: 20210901
  2. OMEPRAZOLE [Concomitant]
     Active Substance: OMEPRAZOLE
     Indication: Product used for unknown indication
     Dosage: 200 MILLIGRAM
  3. DULOXETINE [Concomitant]
     Active Substance: DULOXETINE
     Indication: Product used for unknown indication
  4. ATORVASTATIN [Concomitant]
     Active Substance: ATORVASTATIN
     Indication: Product used for unknown indication
  5. ACYCLOVIR [Concomitant]
     Active Substance: ACYCLOVIR
     Indication: Product used for unknown indication
  6. POTASSIUM [Concomitant]
     Active Substance: POTASSIUM
     Indication: Product used for unknown indication
  7. METOLAZONE [Concomitant]
     Active Substance: METOLAZONE
     Indication: Product used for unknown indication
  8. FUROSEMIDE [Concomitant]
     Active Substance: FUROSEMIDE
     Indication: Product used for unknown indication
  9. GABAPENTIN [Concomitant]
     Active Substance: GABAPENTIN
     Indication: Product used for unknown indication
  10. HYDROXYZINE [Concomitant]
     Active Substance: HYDROXYZINE HYDROCHLORIDE
     Indication: Product used for unknown indication
  11. PREDNISONE [Concomitant]
     Active Substance: PREDNISONE
     Indication: Product used for unknown indication

REACTIONS (6)
  - Wound [Unknown]
  - Muscular weakness [Unknown]
  - Abdominal pain upper [Unknown]
  - Urinary tract infection [Unknown]
  - Product dose omission issue [Unknown]
  - Off label use [Unknown]
